FAERS Safety Report 5010064-2 (Version None)
Quarter: 2006Q2

REPORT INFORMATION
  Report Type: 
  Country: None (occurrence: None)
  Receive Date: 20060523
  Receipt Date: 20060510
  Transmission Date: 20061013
  Serious: Yes (Other)
  Sender: FDA-Public Use
  Company Number: 2006058664

PATIENT
  Age: 56 Year
  Sex: Female
  Weight: 63.05 kg

DRUGS (11)
  1. NEURONTIN [Suspect]
     Indication: FIBROMYALGIA
     Dosage: 1800 MG (600 MG, 3 IN 1 D), ORAL
     Route: 048
     Dates: end: 20060425
  2. LYRICA [Suspect]
     Indication: FIBROMYALGIA
     Dosage: 50 MG (50 MG, 1 IN 1 D), ORAL
     Route: 048
     Dates: start: 20060425, end: 20060502
  3. ACETAMINOPHEN [Concomitant]
  4. COLACE (DOCUSATE SODIUM) [Concomitant]
  5. CELEXA (CITALPOPRAM HYDROBROMIDE) [Concomitant]
  6. NEXIUM [Concomitant]
  7. MEGACE [Concomitant]
  8. FOSAMAX [Concomitant]
  9. VITAMIN C (VITAMIN C) [Concomitant]
  10. VITAMIN B6 (VITAMIN B6) [Concomitant]
  11. CALCIUM (CALCIUM) [Concomitant]

REACTIONS (8)
  - DRUG INEFFECTIVE [None]
  - DRY MOUTH [None]
  - FATIGUE [None]
  - INAPPROPRIATE SCHEDULE OF DRUG ADMINISTRATION [None]
  - INSOMNIA [None]
  - NEOPLASM MALIGNANT [None]
  - POLLAKIURIA [None]
  - SOMNOLENCE [None]
